FAERS Safety Report 7534398-2 (Version None)
Quarter: 2011Q2

REPORT INFORMATION
  Report Type: 
  Country: None (occurrence: None)
  Receive Date: 20110608
  Receipt Date: 20110523
  Transmission Date: 20111010
  Serious: No
  Sender: FDA-Public Use
  Company Number: US-AMGEN-USASP2011026085

PATIENT
  Age: 89 Year

DRUGS (2)
  1. VICODIN [Concomitant]
  2. PROLIA [Suspect]
     Indication: OSTEOPOROSIS POSTMENOPAUSAL
     Dosage: 60 MG, Q6MO
     Dates: start: 20110501

REACTIONS (3)
  - RASH [None]
  - DYSPNOEA [None]
  - URTICARIA [None]
